FAERS Safety Report 10190590 (Version 2)
Quarter: 2014Q2

REPORT INFORMATION
  Report Type: Spontaneous
  Country: JP (occurrence: JP)
  Receive Date: 20140523
  Receipt Date: 20140620
  Transmission Date: 20141212
  Serious: Yes (Other)
  Sender: FDA-Public Use
  Company Number: JP-ABBVIE-14K-087-1240170-00

PATIENT
  Age: 46 Year
  Sex: Female
  Weight: 60 kg

DRUGS (3)
  1. LEUPLIN SR [Suspect]
     Indication: BREAST CANCER FEMALE
     Dates: start: 20130617
  2. LEUPLIN SR [Suspect]
     Indication: PROPHYLAXIS
  3. TAMOXIFEN [Suspect]
     Indication: PRODUCT USED FOR UNKNOWN INDICATION
     Route: 048
     Dates: start: 20120924, end: 20140415

REACTIONS (1)
  - Retinal vein occlusion [Not Recovered/Not Resolved]
